FAERS Safety Report 9127630 (Version 1)
Quarter: 2013Q1

REPORT INFORMATION
  Report Type: Spontaneous
  Country: GB (occurrence: GB)
  Receive Date: 20130125
  Receipt Date: 20130125
  Transmission Date: 20140127
  Serious: Yes (Death, Other)
  Sender: FDA-Public Use
  Company Number: PHHY2013GB007029

PATIENT
  Age: 45 Year
  Sex: Male

DRUGS (1)
  1. CICLOSPORIN [Suspect]
     Indication: TRANSPLANT

REACTIONS (3)
  - Pneumonia aspiration [Fatal]
  - Renal impairment [Unknown]
  - Left ventricular failure [Unknown]
